FAERS Safety Report 11885550 (Version 2)
Quarter: 2016Q1

REPORT INFORMATION
  Report Type: Spontaneous
  Country: JP (occurrence: JP)
  Receive Date: 20160104
  Receipt Date: 20160222
  Transmission Date: 20160526
  Serious: Yes (Hospitalization, Other)
  Sender: FDA-Public Use
  Company Number: JP-PFIZER INC-2015424337

PATIENT
  Age: 60 Year
  Sex: Male

DRUGS (11)
  1. SP [Concomitant]
     Dosage: 0.25 MG, AS NEEDED
     Route: 048
  2. LIPITOR [Concomitant]
     Active Substance: ATORVASTATIN CALCIUM
     Dosage: 10 MG, 1X/DAY
     Route: 048
  3. URSO MITSUBISHI [Concomitant]
     Dosage: 100 MG, 3X/DAY
     Route: 048
  4. REBAMIPIDE [Concomitant]
     Active Substance: REBAMIPIDE
     Dosage: 100 MG, 2X/DAY
     Route: 048
  5. LYRICA [Suspect]
     Active Substance: PREGABALIN
     Indication: HYPOAESTHESIA
     Dosage: 75 MG, 1X/DAY
     Route: 048
     Dates: end: 20151201
  6. ALLEGRA [Concomitant]
     Active Substance: FEXOFENADINE HYDROCHLORIDE
     Dosage: 60 MG, 2X/DAY
     Route: 048
  7. RINDERON VG [Concomitant]
     Active Substance: BETAMETHASONE VALERATE\GENTAMICIN SULFATE
     Dosage: UNK
     Route: 061
  8. LUNESTA [Concomitant]
     Active Substance: ESZOPICLONE
     Dosage: 1 MG, 1X/DAY
     Route: 048
  9. SG /00076501/ [Concomitant]
     Dosage: 1 G, AS NEEDED
     Route: 048
  10. LIMAPROST ALFADEX [Concomitant]
     Active Substance: LIMAPROST
     Dosage: 5 UG, 3X/DAY
     Route: 048
  11. CELECOX [Concomitant]
     Active Substance: CELECOXIB
     Dosage: 100 MG, 2X/DAY
     Route: 048

REACTIONS (14)
  - Movement disorder [Unknown]
  - Decreased appetite [Recovered/Resolved]
  - Depressed level of consciousness [Unknown]
  - Condition aggravated [Recovered/Resolved]
  - Intervertebral disc protrusion [Unknown]
  - Headache [Unknown]
  - Diarrhoea [Recovered/Resolved]
  - Hypokalaemia [Recovered/Resolved]
  - Muscular weakness [Recovered/Resolved]
  - Condition aggravated [Unknown]
  - Rhabdomyolysis [Recovered/Resolved]
  - Diplegia [Recovered/Resolved]
  - Pain in extremity [Recovered/Resolved]
  - Dizziness [Recovered/Resolved]

NARRATIVE: CASE EVENT DATE: 20150208
